FAERS Safety Report 15275776 (Version 1)
Quarter: 2018Q3

REPORT INFORMATION
  Report Type: Spontaneous
  Country: US (occurrence: US)
  Receive Date: 20180814
  Receipt Date: 20180814
  Transmission Date: 20181010
  Serious: Yes (Other)
  Sender: FDA-Public Use
  Company Number: US-PFIZER INC-2018322560

PATIENT
  Age: 27 Year
  Sex: Male

DRUGS (17)
  1. TACROLIMUS. [Suspect]
     Active Substance: TACROLIMUS
     Indication: CHRONIC ALLOGRAFT NEPHROPATHY
  2. TACROLIMUS. [Suspect]
     Active Substance: TACROLIMUS
     Indication: HODGKIN^S DISEASE
  3. ADRIAMYCIN [Concomitant]
     Active Substance: DOXORUBICIN HYDROCHLORIDE
     Indication: EPSTEIN-BARR VIRUS INFECTION
     Dosage: UNK, CYCLIC (SIX CYCLES)
  4. PREDNISONE. [Concomitant]
     Active Substance: PREDNISONE
     Indication: KIDNEY FIBROSIS
  5. MYCOPHENOLATE MOFETIL. [Suspect]
     Active Substance: MYCOPHENOLATE MOFETIL
     Indication: TRANSPLANT REJECTION
     Dosage: UNK
  6. VINBLASTINE [Concomitant]
     Active Substance: VINBLASTINE
     Indication: EPSTEIN-BARR VIRUS INFECTION
     Dosage: UNK  CYCLIC (SIX CYCLES)
  7. MYCOPHENOLATE MOFETIL. [Suspect]
     Active Substance: MYCOPHENOLATE MOFETIL
     Indication: CHRONIC ALLOGRAFT NEPHROPATHY
  8. ADRIAMYCIN [Concomitant]
     Active Substance: DOXORUBICIN HYDROCHLORIDE
     Indication: HODGKIN^S DISEASE NODULAR SCLEROSIS STAGE III
  9. PREDNISONE. [Concomitant]
     Active Substance: PREDNISONE
     Indication: CHRONIC ALLOGRAFT NEPHROPATHY
  10. TACROLIMUS. [Suspect]
     Active Substance: TACROLIMUS
     Indication: KIDNEY FIBROSIS
  11. BLEOMYCIN SULFATE [Concomitant]
     Active Substance: BLEOMYCIN SULFATE
     Indication: HODGKIN^S DISEASE NODULAR SCLEROSIS STAGE III
  12. BLEOMYCIN SULFATE [Concomitant]
     Active Substance: BLEOMYCIN SULFATE
     Indication: EPSTEIN-BARR VIRUS INFECTION
     Dosage: UNK, CYCLIC (SIX CYCLES)
  13. DACARBAZINE. [Concomitant]
     Active Substance: DACARBAZINE
     Indication: EPSTEIN-BARR VIRUS INFECTION
     Dosage: UNK CYCLIC(SIX CYCLES)
  14. PREDNISONE. [Concomitant]
     Active Substance: PREDNISONE
     Indication: IMMUNOSUPPRESSANT DRUG THERAPY
     Dosage: UNK
  15. MYCOPHENOLATE MOFETIL. [Suspect]
     Active Substance: MYCOPHENOLATE MOFETIL
     Indication: KIDNEY FIBROSIS
  16. DACARBAZINE. [Concomitant]
     Active Substance: DACARBAZINE
     Indication: HODGKIN^S DISEASE NODULAR SCLEROSIS STAGE III
  17. VINBLASTINE [Concomitant]
     Active Substance: VINBLASTINE
     Indication: HODGKIN^S DISEASE NODULAR SCLEROSIS STAGE III

REACTIONS (3)
  - Hodgkin^s disease recurrent [Recovered/Resolved]
  - Epstein-Barr virus infection [Unknown]
  - Hepatitis C antibody [Unknown]
